FAERS Safety Report 9518857 (Version 3)
Quarter: 2014Q1

REPORT INFORMATION
  Report Type: Spontaneous
  Country: AU (occurrence: AU)
  Receive Date: 20130912
  Receipt Date: 20140226
  Transmission Date: 20141002
  Serious: Yes (Other)
  Sender: FDA-Public Use
  Company Number: AU-UCBSA-072518

PATIENT
  Sex: Female

DRUGS (11)
  1. KEPPRA [Suspect]
     Indication: EPILEPSY
     Dosage: 500 MG PRESENTATION, 2 MANE (MORNING) AND NOCTE (NIGHT),
     Route: 048
     Dates: start: 2001
  2. LAMICTAL [Suspect]
     Indication: EPILEPSY
     Dosage: 200 MG 1 MANE (MORNING) 2 NOCTE (NIGHT).
     Route: 048
     Dates: start: 2006
  3. LAMICTAL [Suspect]
     Indication: EPILEPSY
     Dosage: UNKNOWN DOSE
  4. CARBAMAZEPINE [Concomitant]
  5. DIABEX [Concomitant]
     Indication: DIABETES MELLITUS
     Route: 048
  6. VITAMIN D [Concomitant]
     Indication: MINERAL SUPPLEMENTATION
     Route: 048
  7. GABAPENTIN [Concomitant]
     Indication: EARLY INFANTILE EPILEPTIC ENCEPHALOPATHY WITH BURST-SUPPRESSION
     Route: 048
     Dates: end: 2009
  8. STATIN [Concomitant]
     Indication: BLOOD CHOLESTEROL DECREASED
     Route: 048
  9. VALPROATE [Concomitant]
     Dates: end: 2009
  10. TOPIRAMATE [Concomitant]
  11. CLOBAZAM [Concomitant]

REACTIONS (1)
  - Pathological gambling [Recovered/Resolved]
